FAERS Safety Report 6835949-3 (Version None)
Quarter: 2010Q3

REPORT INFORMATION
  Report Type: 
  Country: None (occurrence: None)
  Receive Date: 20100713
  Receipt Date: 20100708
  Transmission Date: 20110219
  Serious: Yes (Other)
  Sender: FDA-Public Use
  Company Number: A0850945A

PATIENT
  Sex: Female

DRUGS (2)
  1. TYKERB [Suspect]
     Dosage: 1250MG PER DAY
     Route: 048
     Dates: start: 20100315
  2. TAXOTERE [Concomitant]
     Route: 065

REACTIONS (11)
  - ANORECTAL DISCOMFORT [None]
  - DIARRHOEA [None]
  - DRY MOUTH [None]
  - GASTROINTESTINAL SOUNDS ABNORMAL [None]
  - HAEMORRHOIDS [None]
  - HEPATIC FAILURE [None]
  - JAUNDICE [None]
  - MALIGNANT NEOPLASM PROGRESSION [None]
  - METASTASES TO LIVER [None]
  - MUSCLE SPASMS [None]
  - RECTAL DISCHARGE [None]
